FAERS Safety Report 22346425 (Version 1)
Quarter: 2023Q2

REPORT INFORMATION
  Report Type: Report from Study
  Country: US (occurrence: None)
  Receive Date: 20230519
  Receipt Date: 20230519
  Transmission Date: 20230721
  Serious: Yes (Hospitalization)
  Sender: FDA-Public Use
  Company Number: US-ROCHE-3351004

PATIENT
  Age: 83 Year
  Sex: Male
  Weight: 118.8 kg

DRUGS (2)
  1. ATEZOLIZUMAB [Suspect]
     Active Substance: ATEZOLIZUMAB
     Indication: Bladder transitional cell carcinoma
     Dosage: LAST DOSE: 21/FEB/2022
     Route: 041
     Dates: start: 20211220
  2. GEMCITABINE HYDROCHLORIDE [Suspect]
     Active Substance: GEMCITABINE HYDROCHLORIDE
     Indication: Bladder transitional cell carcinoma
     Dosage: LAST DOSE: 27/JAN/2022
     Route: 065
     Dates: start: 20211220

REACTIONS (4)
  - Asthenia [Recovering/Resolving]
  - Acute myocardial infarction [Recovering/Resolving]
  - Fall [Unknown]
  - Rhabdomyolysis [Recovering/Resolving]

NARRATIVE: CASE EVENT DATE: 20220310
